FAERS Safety Report 7818565-6 (Version None)
Quarter: 2011Q4

REPORT INFORMATION
  Report Type: 
  Country: None (occurrence: None)
  Receive Date: 20111017
  Receipt Date: 20111007
  Transmission Date: 20120403
  Serious: Yes (Other)
  Sender: FDA-Public Use
  Company Number: US-ASTRAZENECA-2010SE59578

PATIENT
  Age: 77 Year
  Sex: Male

DRUGS (1)
  1. NEXIUM [Suspect]
     Route: 048

REACTIONS (6)
  - FALL [None]
  - MALAISE [None]
  - BRAIN INJURY [None]
  - NEOPLASM MALIGNANT [None]
  - CEREBRAL HAEMORRHAGE [None]
  - HIP FRACTURE [None]
